FAERS Safety Report 9108983 (Version 1)
Quarter: 2013Q1

REPORT INFORMATION
  Report Type: Spontaneous
  Country: US (occurrence: US)
  Receive Date: 20130222
  Receipt Date: 20130222
  Transmission Date: 20140127
  Serious: Yes (Hospitalization)
  Sender: FDA-Public Use
  Company Number: US-GLAXOSMITHKLINE-A0849330A

PATIENT
  Age: 56 Year
  Sex: Male

DRUGS (2)
  1. AVANDIA [Suspect]
     Indication: DIABETES MELLITUS
     Dosage: 4MG TWICE PER DAY
     Route: 048
     Dates: start: 20050407, end: 20070104
  2. AVANDAMET [Suspect]
     Indication: DIABETES MELLITUS
     Route: 048
     Dates: start: 20040116, end: 20041214

REACTIONS (6)
  - Cerebrovascular accident [Not Recovered/Not Resolved]
  - Cardiac disorder [Unknown]
  - Pain in extremity [Unknown]
  - Headache [Unknown]
  - Dizziness [Unknown]
  - Cardiac failure congestive [Unknown]
